FAERS Safety Report 12943495 (Version 1)
Quarter: 2016Q4

REPORT INFORMATION
  Report Type: Spontaneous
  Country: None (occurrence: US)
  Receive Date: 20161115
  Receipt Date: 20161115
  Transmission Date: 20170207
  Serious: No
  Sender: FDA-Public Use
  Company Number: US-MEDAC PHARMA, INC.-1059550

PATIENT
  Age: 38 Year
  Sex: Female
  Weight: 95.91 kg

DRUGS (9)
  1. CYMBALTA [Concomitant]
     Active Substance: DULOXETINE HYDROCHLORIDE
  2. CLONAZEPAM. [Concomitant]
     Active Substance: CLONAZEPAM
  3. RISPERIDONE. [Concomitant]
     Active Substance: RISPERIDONE
  4. RASUVO [Suspect]
     Active Substance: METHOTREXATE SODIUM
     Indication: RHEUMATOID ARTHRITIS
  5. HUMIRA [Concomitant]
     Active Substance: ADALIMUMAB
  6. LINZESS [Concomitant]
     Active Substance: LINACLOTIDE
  7. FOLIC ACID. [Concomitant]
     Active Substance: FOLIC ACID
  8. TOPAMAX [Concomitant]
     Active Substance: TOPIRAMATE
  9. PLAQUENIL [Concomitant]
     Active Substance: HYDROXYCHLOROQUINE SULFATE

REACTIONS (1)
  - Injection site bruising [Recovering/Resolving]
